FAERS Safety Report 5121451-6 (Version None)
Quarter: 2006Q4

REPORT INFORMATION
  Report Type: 
  Country: None (occurrence: None)
  Receive Date: 20061003
  Receipt Date: 20060920
  Transmission Date: 20070319
  Serious: Yes (Other)
  Sender: FDA-Public Use
  Company Number: 2006113872

PATIENT
  Sex: Male

DRUGS (1)
  1. ZITHROMAX [Suspect]
     Indication: PYREXIA
     Dosage: 500 MG (500 MG), ORAL
     Route: 048
     Dates: start: 20060918, end: 20060919

REACTIONS (4)
  - BONE PAIN [None]
  - DELIRIUM [None]
  - MYALGIA [None]
  - TONGUE DISCOLOURATION [None]
